FAERS Safety Report 18884415 (Version 1)
Quarter: 2021Q1

REPORT INFORMATION
  Report Type: Other
  Country: CA (occurrence: CA)
  Receive Date: 20210212
  Receipt Date: 20210212
  Transmission Date: 20210420
  Serious: Yes (Other)
  Sender: FDA-Public Use
  Company Number: CA-APOTEX-2021AP002550

PATIENT

DRUGS (2)
  1. TRAVATAN [Suspect]
     Active Substance: TRAVOPROST
     Indication: INTRAOCULAR PRESSURE TEST ABNORMAL
     Dosage: UNK
     Route: 065
  2. TIMOLOL. [Suspect]
     Active Substance: TIMOLOL
     Indication: INTRAOCULAR PRESSURE INCREASED
     Dosage: UNK UNK, BID
     Route: 065

REACTIONS (10)
  - Concomitant disease aggravated [Unknown]
  - Reynold^s syndrome [Unknown]
  - Eyelash discolouration [Unknown]
  - Peripheral circulatory failure [Unknown]
  - Dizziness [Unknown]
  - Vision blurred [Unknown]
  - Mood swings [Unknown]
  - Dry eye [Unknown]
  - Anxiety [Unknown]
  - Visual impairment [Unknown]
